FAERS Safety Report 11242656 (Version 1)
Quarter: 2015Q3

REPORT INFORMATION
  Report Type: Spontaneous
  Country: FI (occurrence: FI)
  Receive Date: 20150707
  Receipt Date: 20150707
  Transmission Date: 20151125
  Serious: Yes (Hospitalization, Other)
  Sender: FDA-Public Use
  Company Number: PHHY2015FI078365

PATIENT
  Age: 52 Year
  Sex: Female

DRUGS (11)
  1. ABSENOR//VALPROATE SODIUM [Concomitant]
     Active Substance: VALPROATE SODIUM
     Indication: SCHIZOPHRENIA
     Dosage: 600 MG, QD
     Route: 048
     Dates: start: 20150325
  2. LEPONEX [Suspect]
     Active Substance: CLOZAPINE
     Indication: SCHIZOPHRENIA, DISORGANISED TYPE
     Dosage: 650 MG, QD
     Route: 048
     Dates: start: 1998, end: 20150325
  3. ABSENOR//VALPROATE SODIUM [Concomitant]
     Active Substance: VALPROATE SODIUM
     Indication: SCHIZOPHRENIA
     Dosage: 1000 MG, QD
     Route: 048
     Dates: start: 20140906, end: 20150325
  4. ABILIFY [Concomitant]
     Active Substance: ARIPIPRAZOLE
     Indication: SCHIZOPHRENIA
     Dosage: 30 MG, QD
     Route: 048
     Dates: start: 20150120, end: 20150325
  5. THYROXIN [Concomitant]
     Active Substance: LEVOTHYROXINE
     Indication: HYPOTHYROIDISM
     Dosage: 0.1 MG, QD (FROM YEARS AGO)
     Route: 048
  6. PEGORION [Concomitant]
     Indication: ABDOMINAL DISCOMFORT
     Dosage: 12 MG, PRN (12 MG 1-2 TIMES PER DAY WHEN NEEDED) MONTHS AGO
     Route: 048
  7. SERTRALINE [Concomitant]
     Active Substance: SERTRALINE HYDROCHLORIDE
     Indication: DEPRESSION
     Dosage: 50 MG, QD
     Route: 048
     Dates: start: 20150320, end: 20150325
  8. ABILIFY [Concomitant]
     Active Substance: ARIPIPRAZOLE
     Indication: SCHIZOPHRENIA
     Dosage: UNK
     Route: 065
     Dates: start: 20150407, end: 201504
  9. TENOX (TEMAZEPAM) [Concomitant]
     Indication: SLEEP DISORDER THERAPY
     Dosage: 40 MG, PRN (20-40 MG ONCE PER DAY WHEN NEEDED) MONTHS AGO
     Route: 048
  10. LORAZEPAM ORIFARM [Concomitant]
     Indication: ANXIETY
     Dosage: 3 MG, PRN (1 MG 1-3 TIMES PER DAY WHEN NEEDED) MONTHS AGO
     Route: 048
  11. VENLAFAXIN BLUEFISH [Concomitant]
     Indication: PRODUCT USED FOR UNKNOWN INDICATION
     Dosage: 75 MG, IN THE MORNINGS
     Route: 065

REACTIONS (26)
  - Hallucination, visual [Unknown]
  - Daydreaming [Unknown]
  - Abulia [Unknown]
  - Hallucination [Unknown]
  - Mutism [Unknown]
  - Anxiety [Unknown]
  - Refusal of treatment by patient [Unknown]
  - Restlessness [Unknown]
  - Neutrophil count decreased [Recovered/Resolved]
  - Poor quality sleep [Unknown]
  - Haemoglobin decreased [Recovered/Resolved]
  - Stubbornness [Unknown]
  - Fear [Unknown]
  - Endometrial hyperplasia [Unknown]
  - Agitation [Unknown]
  - Aggression [Unknown]
  - White blood cell count decreased [Recovered/Resolved]
  - Cervix carcinoma [Unknown]
  - Hearing impaired [Unknown]
  - Suspiciousness [Unknown]
  - Food aversion [Unknown]
  - Apathy [Unknown]
  - Hallucination, auditory [Unknown]
  - Acute psychosis [Unknown]
  - Agranulocytosis [Recovered/Resolved]
  - Mental impairment [Unknown]

NARRATIVE: CASE EVENT DATE: 2015
